FAERS Safety Report 5130640-6 (Version None)
Quarter: 2006Q4

REPORT INFORMATION
  Report Type: 
  Country: None (occurrence: None)
  Receive Date: 20061013
  Receipt Date: 20060922
  Transmission Date: 20070319
  Serious: Yes (Hospitalization, Other)
  Sender: FDA-Public Use
  Company Number: US200609000701

PATIENT
  Age: 37 Year
  Sex: Female
  Weight: 62.1 kg

DRUGS (4)
  1. ZYPREXA [Suspect]
     Indication: BIPOLAR DISORDER
     Dosage: 20 MG, DAILY (1/D)
     Dates: start: 20040101
  2. DEPAKOTE [Concomitant]
  3. ZOLOFT [Concomitant]
  4. NORTRIPTYLINE HCL [Concomitant]

REACTIONS (4)
  - ARRHYTHMIA [None]
  - COMA [None]
  - CONVULSION [None]
  - OVERDOSE [None]
